FAERS Safety Report 4382384-6 (Version None)
Quarter: 2004Q2

REPORT INFORMATION
  Report Type: 
  Country: None (occurrence: None)
  Receive Date: 20040622
  Receipt Date: 20040610
  Transmission Date: 20050107
  Serious: Yes (Hospitalization)
  Sender: FDA-Public Use
  Company Number: GB-BRISTOL-MYERS SQUIBB COMPANY-12619185

PATIENT
  Age: 45 Year
  Sex: Male
  Weight: 117 kg

DRUGS (6)
  1. MITOXANA [Suspect]
     Indication: SARCOMA
     Route: 041
     Dates: start: 20040224, end: 20040224
  2. OXYCONTIN [Concomitant]
     Dates: start: 20040401
  3. OXYNORM [Concomitant]
     Dates: start: 20040401
  4. ROFECOXIB [Concomitant]
  5. GABAPENTIN [Concomitant]
  6. OMEPRAZOLE [Concomitant]

REACTIONS (3)
  - CONFUSIONAL STATE [None]
  - ENCEPHALOPATHY [None]
  - SOMNOLENCE [None]
